FAERS Safety Report 4489559-6 (Version None)
Quarter: 2004Q4

REPORT INFORMATION
  Report Type: 
  Country: None (occurrence: None)
  Receive Date: 20041026
  Receipt Date: 20041012
  Transmission Date: 20050328
  Serious: Yes (Life-Threatening, Hospitalization)
  Sender: FDA-Public Use
  Company Number: 2004238909GB

PATIENT
  Age: 72 Year
  Sex: Male

DRUGS (12)
  1. CELEBREX [Suspect]
     Dosage: 100 MG, BID, ORAL
     Route: 048
  2. IRBESARTAN [Suspect]
     Indication: NEUROPATHY
     Dosage: 300 MG, QD
  3. CARBOPLATIN [Concomitant]
  4. LEVOTHYROXINE SODIUM [Concomitant]
  5. ASPIRIN [Concomitant]
  6. ALENDRONATE SODIUM [Concomitant]
  7. SULFASALAZINE [Concomitant]
  8. AMLODIPINE [Concomitant]
  9. DOXAZOSIN (DOXAZOSIN) [Concomitant]
  10. FRUSEMIDE [Concomitant]
  11. GLICLAZIDE (GLICLAZIDE) [Concomitant]
  12. GABAPENTIN [Concomitant]

REACTIONS (1)
  - BLOOD POTASSIUM INCREASED [None]
